FAERS Safety Report 11733035 (Version 1)
Quarter: 2015Q4

REPORT INFORMATION
  Report Type: Spontaneous
  Country: US (occurrence: US)
  Receive Date: 20151110
  Receipt Date: 20151110
  Transmission Date: 20160304
  Serious: No
  Sender: FDA-Public Use
  Company Number: US-ELI_LILLY_AND_COMPANY-US201202003014

PATIENT
  Age: 94 Year
  Sex: Female

DRUGS (2)
  1. FORTEO [Suspect]
     Active Substance: TERIPARATIDE
     Indication: OSTEOPOROSIS
     Dosage: UNK UNK, UNKNOWN
     Route: 065
  2. FORTEO [Suspect]
     Active Substance: TERIPARATIDE
     Dosage: UNK UNK, UNKNOWN
     Route: 065

REACTIONS (13)
  - Constipation [Unknown]
  - Infrequent bowel movements [Recovering/Resolving]
  - Diarrhoea [Recovering/Resolving]
  - Spinal column injury [Unknown]
  - Gastrointestinal disorder [Unknown]
  - Bowel movement irregularity [Recovering/Resolving]
  - Pain in extremity [Unknown]
  - Injury associated with device [Recovered/Resolved]
  - Faeces discoloured [Recovering/Resolving]
  - Cough [Unknown]
  - Asthma [Unknown]
  - Gallbladder disorder [Unknown]
  - Pain [Unknown]

NARRATIVE: CASE EVENT DATE: 20111120
